FAERS Safety Report 4262059-4 (Version None)
Quarter: 2004Q1

REPORT INFORMATION
  Report Type: 
  Country: None (occurrence: None)
  Receive Date: 20040102
  Receipt Date: 20031024
  Transmission Date: 20041129
  Serious: Yes (Hospitalization)
  Sender: FDA-Public Use
  Company Number: JP-GLAXOSMITHKLINE-B0313232A

PATIENT
  Age: 20 Year
  Sex: Female

DRUGS (2)
  1. ZOVIRAX [Suspect]
     Indication: HERPES SIMPLEX
     Dosage: 800MG PER DAY
     Route: 048
     Dates: start: 20030917, end: 20030918
  2. VIDARABINE [Concomitant]
     Indication: HERPES SIMPLEX
     Route: 061
     Dates: start: 20030917, end: 20030926

REACTIONS (7)
  - DRUG HYPERSENSITIVITY [None]
  - ERYTHEMA [None]
  - LIVER DISORDER [None]
  - PLATELET COUNT DECREASED [None]
  - PRURITUS [None]
  - PYREXIA [None]
  - WHITE BLOOD CELL COUNT DECREASED [None]
